FAERS Safety Report 16024556 (Version 3)
Quarter: 2019Q2

REPORT INFORMATION
  Report Type: Spontaneous
  Country: US (occurrence: US)
  Receive Date: 20190301
  Receipt Date: 20190415
  Transmission Date: 20190711
  Serious: No
  Sender: FDA-Public Use
  Company Number: US-BAUSCH-BL-2019-004779

PATIENT
  Age: 85 Year
  Sex: Female
  Weight: 70.37 kg

DRUGS (5)
  1. LOTEMAX [Suspect]
     Active Substance: LOTEPREDNOL ETABONATE
     Route: 047
     Dates: start: 2019
  2. LOTEMAX [Suspect]
     Active Substance: LOTEPREDNOL ETABONATE
     Indication: POSTOPERATIVE CARE
     Dosage: 1 DROP IN THE RIGHT EYE EVERY 4 HOURS, FILL SIZE: 5 MG
     Route: 047
     Dates: start: 20190129, end: 2019
  3. LOTEMAX [Suspect]
     Active Substance: LOTEPREDNOL ETABONATE
     Route: 047
     Dates: start: 2019
  4. WARFARIN [Concomitant]
     Active Substance: WARFARIN
     Indication: PRODUCT USED FOR UNKNOWN INDICATION
  5. LOTEMAX [Suspect]
     Active Substance: LOTEPREDNOL ETABONATE
     Dosage: 1 DROP IN THE RIGHT EYE EVERY 4 HOURS; NEW BOTTLE
     Route: 047
     Dates: start: 2019

REACTIONS (5)
  - Inappropriate schedule of product administration [Unknown]
  - Foreign body in eye [Unknown]
  - Product quality issue [Unknown]
  - Foreign body sensation in eyes [Recovered/Resolved]
  - Eye pain [Not Recovered/Not Resolved]

NARRATIVE: CASE EVENT DATE: 2019
